FAERS Safety Report 14255351 (Version 6)
Quarter: 2019Q2

REPORT INFORMATION
  Report Type: Report from Study
  Country: UA (occurrence: UA)
  Receive Date: 20171206
  Receipt Date: 20190405
  Transmission Date: 20190711
  Serious: Yes (Death, Life-Threatening, Hospitalization)
  Sender: FDA-Public Use
  Company Number: UA-ROCHE-2031821

PATIENT
  Age: 72 Year
  Sex: Female
  Weight: 82.3 kg

DRUGS (5)
  1. BISOPROLOLUM [Concomitant]
     Active Substance: BISOPROLOL FUMARATE
     Indication: HYPERTENSION
     Route: 048
     Dates: start: 2004
  2. AMLODIPINE [Concomitant]
     Active Substance: AMLODIPINE BESYLATE
     Indication: HYPERTENSION
     Route: 048
     Dates: start: 2004
  3. ATEZOLIZUMAB. [Suspect]
     Active Substance: ATEZOLIZUMAB
     Indication: TRANSITIONAL CELL CARCINOMA
     Dosage: DATE OF MOST RECENT DOSE PRIOR TO EVENT ONSET ON 03/NOV/2017 AT 13:45.
     Route: 042
     Dates: start: 20170810
  4. METAMIN (UKRAINE) [Concomitant]
     Indication: DIABETES MELLITUS
     Route: 048
     Dates: start: 2013
  5. VALSARTANUM [Concomitant]
     Indication: HYPERTENSION
     Route: 048
     Dates: start: 200412

REACTIONS (2)
  - Small intestine ulcer [Recovered/Resolved with Sequelae]
  - Post procedural haemorrhage [Fatal]

NARRATIVE: CASE EVENT DATE: 20171122
